FAERS Safety Report 15200908 (Version 1)
Quarter: 2018Q3

REPORT INFORMATION
  Report Type: Spontaneous
  Country: DE (occurrence: DE)
  Receive Date: 20180726
  Receipt Date: 20180726
  Transmission Date: 20181010
  Serious: Yes (Other)
  Sender: FDA-Public Use
  Company Number: DE-AMGEN-DEUSP2018099161

PATIENT
  Age: 18 Year
  Sex: Male

DRUGS (1)
  1. NPLATE [Suspect]
     Active Substance: ROMIPLOSTIM
     Indication: IMMUNE THROMBOCYTOPENIC PURPURA
     Dosage: UNK
     Route: 065
     Dates: start: 20180607

REACTIONS (3)
  - Platelet count decreased [Recovering/Resolving]
  - Radiculopathy [Recovering/Resolving]
  - Neuroborreliosis [Recovering/Resolving]

NARRATIVE: CASE EVENT DATE: 2018
